FAERS Safety Report 24145936 (Version 1)
Quarter: 2024Q3

REPORT INFORMATION
  Report Type: Spontaneous
  Country: ZA (occurrence: None)
  Receive Date: 20240729
  Receipt Date: 20240729
  Transmission Date: 20241017
  Serious: Yes (Death, Other)
  Sender: ASTRAZENECA
  Company Number: 2024A171163

PATIENT
  Age: 78 Year
  Sex: Male

DRUGS (8)
  1. DAPAGLIFLOZIN PROPANEDIOL [Suspect]
     Active Substance: DAPAGLIFLOZIN PROPANEDIOL
     Indication: Type 2 diabetes mellitus
     Dosage: 10.0MG UNKNOWN
     Route: 048
  2. ASPIRIN [Concomitant]
     Active Substance: ASPIRIN
     Indication: Anticoagulant therapy
     Dosage: 100.0MG UNKNOWN
     Route: 048
  3. SIMVASTATIN [Concomitant]
     Active Substance: SIMVASTATIN
     Indication: Blood cholesterol
     Dosage: 20.0MG UNKNOWN
     Route: 048
  4. SPIRACTIN [Concomitant]
     Indication: Hypertension
     Dosage: 25.0MG UNKNOWN
     Route: 048
  5. SPIRACTIN [Concomitant]
     Indication: Oedema
     Dosage: 25.0MG UNKNOWN
     Route: 048
  6. SPIRACTIN [Concomitant]
     Indication: Cardiac failure
     Dosage: 25.0MG UNKNOWN
     Route: 048
  7. SPIRACTIN [Concomitant]
     Indication: Hepatic cirrhosis
     Dosage: 25.0MG UNKNOWN
     Route: 048
  8. SPIRACTIN [Concomitant]
     Indication: Renal impairment
     Dosage: 25.0MG UNKNOWN
     Route: 048

REACTIONS (1)
  - Myocardial infarction [Fatal]

NARRATIVE: CASE EVENT DATE: 20240521
